FAERS Safety Report 7538469-6 (Version None)
Quarter: 2011Q2

REPORT INFORMATION
  Report Type: 
  Country: None (occurrence: None)
  Receive Date: 20110609
  Receipt Date: 20110602
  Transmission Date: 20111010
  Serious: Yes (Other)
  Sender: FDA-Public Use
  Company Number: US-RB-026696-11

PATIENT
  Age: 31 Year
  Sex: Female

DRUGS (1)
  1. SUBOXONE [Suspect]
     Indication: PRODUCT USED FOR UNKNOWN INDICATION
     Dosage: SUBLINGUAL FILM / UNKNOWN DOSING INFORMATION
     Route: 065

REACTIONS (17)
  - MALAISE [None]
  - DEREALISATION [None]
  - ANXIETY [None]
  - HEART RATE INCREASED [None]
  - CRYING [None]
  - COUGH [None]
  - HYPERHIDROSIS [None]
  - ABDOMINAL PAIN UPPER [None]
  - UNDERDOSE [None]
  - UNEVALUABLE EVENT [None]
  - EMOTIONAL DISORDER [None]
  - SUICIDAL IDEATION [None]
  - FEELING ABNORMAL [None]
  - LACRIMATION INCREASED [None]
  - OFF LABEL USE [None]
  - HEADACHE [None]
  - DRUG DEPENDENCE [None]
